FAERS Safety Report 17941221 (Version 1)
Quarter: 2020Q2

REPORT INFORMATION
  Report Type: Spontaneous
  Country: US (occurrence: US)
  Receive Date: 20200624
  Receipt Date: 20200624
  Transmission Date: 20200714
  Serious: Yes (Other)
  Sender: FDA-Public Use
  Company Number: None

PATIENT
  Age: 58 Year
  Sex: Female
  Weight: 86.4 kg

DRUGS (1)
  1. THYROGEN [Suspect]
     Active Substance: THYROTROPIN ALFA
     Indication: POSITRON EMISSION TOMOGRAM
     Dosage: ?          OTHER FREQUENCY:2 DOSES 24 HOURS A;?
     Route: 030
     Dates: start: 20200622, end: 20200623

REACTIONS (10)
  - Nausea [None]
  - Diarrhoea [None]
  - Fatigue [None]
  - Abdominal pain [None]
  - Head discomfort [None]
  - Vomiting [None]
  - Presyncope [None]
  - Headache [None]
  - Muscular weakness [None]
  - Dizziness [None]

NARRATIVE: CASE EVENT DATE: 20200623
